FAERS Safety Report 5516031-4 (Version None)
Quarter: 2007Q4

REPORT INFORMATION
  Report Type: 
  Country: None (occurrence: None)
  Receive Date: 20071109
  Receipt Date: 20070917
  Transmission Date: 20080405
  Serious: Yes (Hospitalization)
  Sender: FDA-Public Use
  Company Number: 2007S1009460

PATIENT
  Age: 36 Year
  Sex: Female

DRUGS (1)
  1. AZATHIOPRINE [Suspect]
     Indication: CROHN'S DISEASE
     Dosage: 50 MG

REACTIONS (3)
  - PERITONITIS BACTERIAL [None]
  - SALMONELLOSIS [None]
  - TACHYCARDIA [None]
